FAERS Safety Report 19645281 (Version 2)
Quarter: 2021Q4

REPORT INFORMATION
  Report Type: Spontaneous
  Country: US (occurrence: US)
  Receive Date: 20210802
  Receipt Date: 20211002
  Transmission Date: 20220303
  Serious: Yes (Hospitalization)
  Sender: FDA-Public Use
  Company Number: US-ROCHE-2878994

PATIENT
  Age: 69 Year
  Sex: Male
  Weight: 90.35 kg

DRUGS (8)
  1. LUCENTIS [Suspect]
     Active Substance: RANIBIZUMAB
     Indication: Age-related macular degeneration
     Dosage: INJECTION IN RIGHT EYE ;ONGOING: YES
     Route: 031
     Dates: start: 20191112
  2. LUCENTIS [Suspect]
     Active Substance: RANIBIZUMAB
     Dosage: ON 20/JUL/2021, HE RECEIVED MOST RECENT DOSE OF RANIBIZUMAB WHICH WAS TAKEN EVERY 5 WEEKS, SOMETIME
     Route: 031
     Dates: start: 20210720
  3. KEFLEX [Concomitant]
     Active Substance: CEPHALEXIN
  4. AMPICILLIN [Concomitant]
     Active Substance: AMPICILLIN
  5. AMLODIPINE BESYLATE [Concomitant]
     Active Substance: AMLODIPINE BESYLATE
     Indication: Hypertension
     Route: 048
     Dates: end: 202106
  6. OLMESARTAN MEDOXOMIL [Concomitant]
     Active Substance: OLMESARTAN MEDOXOMIL
     Indication: Hypertension
     Route: 048
  7. OLMESARTAN MEDOXOMIL [Concomitant]
     Active Substance: OLMESARTAN MEDOXOMIL
     Route: 048
  8. LOVASTATIN [Concomitant]
     Active Substance: LOVASTATIN
     Indication: Blood cholesterol
     Route: 048

REACTIONS (7)
  - Vertigo [Not Recovered/Not Resolved]
  - Dysstasia [Recovered/Resolved with Sequelae]
  - Nausea [Not Recovered/Not Resolved]
  - Hyperhidrosis [Not Recovered/Not Resolved]
  - Gait disturbance [Not Recovered/Not Resolved]
  - Weight decreased [Recovered/Resolved]
  - Dizziness [Not Recovered/Not Resolved]

NARRATIVE: CASE EVENT DATE: 20200103
